FAERS Safety Report 6366919-X (Version None)
Quarter: 2009Q3

REPORT INFORMATION
  Report Type: 
  Country: None (occurrence: None)
  Receive Date: 20090921
  Receipt Date: 20090909
  Transmission Date: 20100115
  Serious: Yes (Hospitalization, Other)
  Sender: FDA-Public Use
  Company Number: US-ELI_LILLY_AND_COMPANY-US200907003363

PATIENT
  Sex: Female
  Weight: 49.887 kg

DRUGS (13)
  1. FORTEO [Suspect]
     Indication: OSTEOPOROSIS
     Dosage: 20 UG, DAILY (1/D)
     Dates: start: 20090707, end: 20090708
  2. PREDNISONE [Concomitant]
     Dosage: 5 MG, UNK
  3. HUMIRA [Concomitant]
     Dosage: 40 MG, UNK
  4. INSULIN [Concomitant]
  5. ZOCOR [Concomitant]
  6. SENOKOT [Concomitant]
  7. VITAMIN E [Concomitant]
  8. REGLAN [Concomitant]
  9. FOLIC ACID [Concomitant]
     Dosage: 1 MG, UNK
  10. ALTACE [Concomitant]
  11. HYDROCODONE [Concomitant]
  12. TUSSIONEX [Concomitant]
  13. DULCOLAX [Concomitant]

REACTIONS (4)
  - CHRONIC OBSTRUCTIVE PULMONARY DISEASE [None]
  - DIABETES MELLITUS INADEQUATE CONTROL [None]
  - HYPOGLYCAEMIA [None]
  - PULMONARY MASS [None]
